FAERS Safety Report 22058079 (Version 1)
Quarter: 2023Q1

REPORT INFORMATION
  Report Type: Spontaneous
  Country: CL (occurrence: CL)
  Receive Date: 20230303
  Receipt Date: 20230303
  Transmission Date: 20230417
  Serious: Yes (Death, Hospitalization, Other)
  Sender: FDA-Public Use
  Company Number: CL-BoehringerIngelheim-2023-BI-222122

PATIENT
  Age: 69 Year

DRUGS (2)
  1. PRADAXA [Suspect]
     Active Substance: DABIGATRAN ETEXILATE MESYLATE
     Indication: Product used for unknown indication
  2. PRADAXA [Suspect]
     Active Substance: DABIGATRAN ETEXILATE MESYLATE

REACTIONS (10)
  - Faeces discoloured [Fatal]
  - Epistaxis [Fatal]
  - Shock haemorrhagic [Fatal]
  - Shock [Fatal]
  - Multiple organ dysfunction syndrome [Fatal]
  - Gastrointestinal haemorrhage [Fatal]
  - Haemangioma [Fatal]
  - Intestinal varices [Fatal]
  - General physical health deterioration [Fatal]
  - Ecchymosis [Unknown]

NARRATIVE: CASE EVENT DATE: 20230108
